FAERS Safety Report 6139321-3 (Version None)
Quarter: 2009Q2

REPORT INFORMATION
  Report Type: 
  Country: None (occurrence: None)
  Receive Date: 20090401
  Receipt Date: 20090323
  Transmission Date: 20091009
  Serious: Yes (Other)
  Sender: FDA-Public Use
  Company Number: PHEH2009US02932

PATIENT
  Age: 59 Year
  Sex: Female

DRUGS (1)
  1. LOTREL [Suspect]
     Dosage: UNK
     Dates: start: 19950101

REACTIONS (1)
  - ANEURYSM [None]
